FAERS Safety Report 23391812 (Version 1)
Quarter: 2024Q1

REPORT INFORMATION
  Report Type: Report from Study
  Country: GB (occurrence: GB)
  Receive Date: 20240111
  Receipt Date: 20240111
  Transmission Date: 20240409
  Serious: Yes (Other)
  Sender: FDA-Public Use
  Company Number: GB-Korea IPSEN-2008-0984

PATIENT

DRUGS (2)
  1. DYSPORT [Suspect]
     Active Substance: ABOBOTULINUMTOXINA
     Indication: Strabismus
     Route: 065
  2. DYSPORT [Suspect]
     Active Substance: ABOBOTULINUMTOXINA
     Indication: Off label use

REACTIONS (6)
  - Paralysis [Unknown]
  - Eye movement disorder [Unknown]
  - Conjunctival haemorrhage [Unknown]
  - Eyelid ptosis [Recovered/Resolved]
  - Injection site vesicles [Unknown]
  - Off label use [Unknown]
